FAERS Safety Report 23743692 (Version 1)
Quarter: 2024Q2

REPORT INFORMATION
  Report Type: Report from Study
  Country: ID (occurrence: None)
  Receive Date: 20240415
  Receipt Date: 20240415
  Transmission Date: 20240716
  Serious: Yes (Death, Life-Threatening, Hospitalization, Other)
  Sender: FDA-Public Use
  Company Number: 2019SF64183

PATIENT
  Age: 18355 Day
  Sex: Male

DRUGS (1)
  1. TAGRISSO [Suspect]
     Active Substance: OSIMERTINIB
     Indication: Non-small cell lung cancer
     Route: 048
     Dates: start: 20191108

REACTIONS (14)
  - Haemoglobin decreased [Fatal]
  - Carcinoembryonic antigen increased [Fatal]
  - Critical illness [Fatal]
  - Loss of consciousness [Fatal]
  - Dyspnoea [Fatal]
  - Haemoptysis [Fatal]
  - Productive cough [Fatal]
  - Dehydration [Unknown]
  - Chest pain [Unknown]
  - Cough [Not Recovered/Not Resolved]
  - Vascular rupture [Unknown]
  - Dysphonia [Unknown]
  - Dry throat [Unknown]
  - Decreased appetite [Unknown]

NARRATIVE: CASE EVENT DATE: 20200109
